FAERS Safety Report 15956422 (Version 1)
Quarter: 2019Q1

REPORT INFORMATION
  Report Type: Spontaneous
  Country: US (occurrence: US)
  Receive Date: 20190213
  Receipt Date: 20190213
  Transmission Date: 20190417
  Serious: Yes (Disabling)
  Sender: FDA-Public Use
  Company Number: None

PATIENT
  Age: 26 Year
  Sex: Female
  Weight: 54.43 kg

DRUGS (3)
  1. ALLEGRA [Concomitant]
     Active Substance: FEXOFENADINE HYDROCHLORIDE
  2. DIFFERIN [Concomitant]
     Active Substance: ADAPALENE
  3. NEXPLANON [Suspect]
     Active Substance: ETONOGESTREL

REACTIONS (7)
  - Anger [None]
  - Partner stress [None]
  - Weight increased [None]
  - Affect lability [None]
  - Frustration tolerance decreased [None]
  - Menorrhagia [None]
  - Mood swings [None]

NARRATIVE: CASE EVENT DATE: 20160601
